FAERS Safety Report 13026723 (Version 1)
Quarter: 2016Q4

REPORT INFORMATION
  Report Type: Spontaneous
  Country: US (occurrence: US)
  Receive Date: 20161214
  Receipt Date: 20161214
  Transmission Date: 20170207
  Serious: Yes (Other)
  Sender: FDA-Public Use
  Company Number: US-WEST-WARD PHARMACEUTICALS CORP.-US-H14001-16-02776

PATIENT
  Age: 23 Year
  Sex: Female

DRUGS (2)
  1. 6-MERCAPTOPURINE [Suspect]
     Active Substance: MERCAPTOPURINE
     Indication: PROCTITIS ULCERATIVE
     Route: 065
  2. PREDNISONE. [Concomitant]
     Active Substance: PREDNISONE
     Indication: PROCTITIS ULCERATIVE
     Route: 065

REACTIONS (2)
  - Histiocytosis haematophagic [Unknown]
  - Hepatosplenic T-cell lymphoma [Recovering/Resolving]
